FAERS Safety Report 10190806 (Version 1)
Quarter: 2014Q2

REPORT INFORMATION
  Report Type: Spontaneous
  Country: SE (occurrence: SE)
  Receive Date: 20140523
  Receipt Date: 20140523
  Transmission Date: 20141212
  Serious: Yes (Other)
  Sender: FDA-Public Use
  Company Number: PHHY2014SE061214

PATIENT
  Age: 75 Year
  Sex: Female

DRUGS (7)
  1. COMTESS [Suspect]
     Dosage: UNK UKN, UNK
  2. AZILECT [Concomitant]
     Indication: PARKINSON^S DISEASE
     Dosage: UNK UKN, UNK
  3. MADOPAR [Concomitant]
     Indication: PARKINSON^S DISEASE
     Dosage: UNK UKN, UNK
  4. MADOPAR QUICK [Concomitant]
     Indication: PARKINSON^S DISEASE
     Dosage: UNK UKN, UNK
  5. SINEMET [Concomitant]
     Indication: PARKINSON^S DISEASE
     Dosage: UNK UKN, UNK
  6. NEUPRO [Concomitant]
     Indication: PARKINSON^S DISEASE
     Dosage: 4 MG, UNK
  7. NEUPRO [Concomitant]
     Dosage: 8 MG, UNK

REACTIONS (5)
  - Musculoskeletal stiffness [Unknown]
  - Nightmare [Unknown]
  - Hallucination, visual [Unknown]
  - Constipation [Unknown]
  - Abdominal pain [Unknown]
